FAERS Safety Report 9949981 (Version 1)
Quarter: 2014Q1

REPORT INFORMATION
  Report Type: Report from Study
  Country: US (occurrence: US)
  Receive Date: 20140304
  Receipt Date: 20140304
  Transmission Date: 20141002
  Serious: No
  Sender: FDA-Public Use
  Company Number: US-ABBVIE-13P-163-1065534-00

PATIENT
  Age: 37 Year
  Sex: Female
  Weight: 56.3 kg

DRUGS (2)
  1. HUMIRA PEN [Suspect]
     Indication: CROHN^S DISEASE
     Dates: start: 20130103
  2. 6-MP [Concomitant]
     Indication: CROHN^S DISEASE
     Dates: start: 2012

REACTIONS (2)
  - Rash papular [Recovering/Resolving]
  - Skin infection [Recovering/Resolving]
